FAERS Safety Report 8925889 (Version 1)
Quarter: 2012Q4

REPORT INFORMATION
  Report Type: 
  Country: BR (occurrence: BR)
  Receive Date: 20121126
  Receipt Date: 20121126
  Transmission Date: 20130627
  Serious: Yes (Other)
  Sender: FDA-Public Use
  Company Number: PHHY2012BR106904

PATIENT
  Age: 17 Year
  Sex: Male
  Weight: 60 kg

DRUGS (3)
  1. TRILEPTAL [Suspect]
     Indication: TIC
     Dosage: 300 mg (half tablet daily)
     Route: 048
     Dates: start: 20120905, end: 20121009
  2. TRILEPTAL [Suspect]
     Dosage: 600 mg (1 tablet daily)
     Route: 048
     Dates: start: 20121009, end: 20121120
  3. AVAMYS [Concomitant]
     Indication: RHINITIS ALLERGIC
     Dosage: 1 application in each nostril at night

REACTIONS (6)
  - Dengue fever [Not Recovered/Not Resolved]
  - Pain [Recovering/Resolving]
  - Dizziness [Recovered/Resolved]
  - Vision blurred [Recovered/Resolved]
  - Nausea [Recovered/Resolved]
  - Pyrexia [Recovered/Resolved]
